FAERS Safety Report 4314605-X (Version None)
Quarter: 2004Q1

REPORT INFORMATION
  Report Type: 
  Country: None (occurrence: None)
  Receive Date: 20040308
  Receipt Date: 20040227
  Transmission Date: 20041129
  Serious: Yes (Other)
  Sender: FDA-Public Use
  Company Number: 2004-01-0427

PATIENT
  Age: 28 Year
  Sex: Female
  Weight: 60 kg

DRUGS (3)
  1. REBETOL [Suspect]
     Indication: HEPATITIS C
     Dosage: 600 MG QD* ORAL
     Route: 048
     Dates: start: 20031006, end: 20040121
  2. INTRON A [Suspect]
     Indication: HEPATITIS C
     Dosage: 6 MU* 6-3X/WK INTRAMUSCUL
     Route: 030
     Dates: start: 20031006, end: 20040121
  3. LOXONIN [Concomitant]

REACTIONS (2)
  - ANAEMIA [None]
  - CARPAL TUNNEL SYNDROME [None]
